FAERS Safety Report 17307282 (Version 4)
Quarter: 2020Q3

REPORT INFORMATION
  Report Type: Report from Study
  Country: US (occurrence: US)
  Receive Date: 20200123
  Receipt Date: 20200728
  Transmission Date: 20201102
  Serious: Yes (Hospitalization)
  Sender: FDA-Public Use
  Company Number: NVSC2020US015730

PATIENT
  Age: 29 Year
  Sex: Male

DRUGS (1)
  1. LAMPRENE [Suspect]
     Active Substance: CLOFAZIMINE
     Indication: MYCOBACTERIUM ABSCESSUS INFECTION
     Dosage: 100 MG, QD
     Route: 048
     Dates: start: 20180712

REACTIONS (7)
  - Ejection fraction decreased [Recovered/Resolved]
  - Haemoptysis [Recovered/Resolved]
  - Deep vein thrombosis [Recovered/Resolved]
  - Lung infiltration [Recovered/Resolved]
  - Coronavirus infection [Recovered/Resolved]
  - Cough [Unknown]
  - Chest discomfort [Unknown]

NARRATIVE: CASE EVENT DATE: 20200110
